FAERS Safety Report 22671327 (Version 4)
Quarter: 2024Q4

REPORT INFORMATION
  Report Type: Report from Study
  Country: US (occurrence: US)
  Receive Date: 20230705
  Receipt Date: 20241008
  Transmission Date: 20250115
  Serious: No
  Sender: NOVARTIS
  Company Number: US-002147023-NVSC2023US149878

PATIENT
  Age: 35 Year
  Sex: Female
  Weight: 112.5 kg

DRUGS (6)
  1. KESIMPTA [Suspect]
     Active Substance: OFATUMUMAB
     Indication: Relapsing-remitting multiple sclerosis
     Dosage: 20 MG, QMO
     Route: 058
  2. KESIMPTA [Suspect]
     Active Substance: OFATUMUMAB
     Indication: Multiple sclerosis
     Dosage: UNK, 28D
     Route: 058
  3. CANNABIS SATIVA SUBSP. INDICA TOP [Concomitant]
     Active Substance: CANNABIS SATIVA SUBSP. INDICA TOP
     Indication: Pain
     Dosage: UNK
     Route: 065
  4. EZETIMIBE [Concomitant]
     Active Substance: EZETIMIBE
     Indication: Product used for unknown indication
     Dosage: UNK
     Route: 065
  5. LOSARTAN [Concomitant]
     Active Substance: LOSARTAN
     Indication: Product used for unknown indication
     Dosage: UNK
     Route: 065
  6. AMLODIPINE [Concomitant]
     Active Substance: AMLODIPINE BESYLATE
     Indication: Product used for unknown indication
     Dosage: UNK
     Route: 065

REACTIONS (17)
  - Brain fog [Unknown]
  - Product administration error [Unknown]
  - Lhermitte^s sign [Unknown]
  - Pain [Unknown]
  - Arthralgia [Unknown]
  - Weight bearing difficulty [Unknown]
  - Hypoaesthesia [Unknown]
  - Injury [Unknown]
  - Nightmare [Unknown]
  - Disturbance in attention [Unknown]
  - Tremor [Unknown]
  - Fatigue [Unknown]
  - Snoring [Unknown]
  - Tenderness [Unknown]
  - Gait disturbance [Unknown]
  - Post-traumatic stress disorder [Not Recovered/Not Resolved]
  - Neuralgia [Unknown]
